FAERS Safety Report 10390143 (Version 1)
Quarter: 2014Q3

REPORT INFORMATION
  Report Type: Spontaneous
  Country: GB (occurrence: None)
  Receive Date: 20140814
  Receipt Date: 20140814
  Transmission Date: 20150326
  Serious: Yes (Hospitalization)
  Sender: FDA-Public Use
  Company Number: 2014AP003789

PATIENT
  Age: 91 Year
  Sex: Female

DRUGS (14)
  1. SENNA /00142201/ (SENNA ALEXANDRINA) [Concomitant]
  2. ALLOPURINOL. [Concomitant]
     Active Substance: ALLOPURINOL
  3. DOCUSATE [Concomitant]
     Active Substance: DOCUSATE
  4. SOLIFENACIN (SOLIFENACIN) [Suspect]
     Active Substance: SOLIFENACIN
     Indication: PRODUCT USED FOR UNKNOWN INDICATION
     Route: 048
     Dates: end: 20140722
  5. ASPIRIN (ACETYLSALICYLIC ACID) [Concomitant]
     Active Substance: ASPIRIN
  6. COLECALCIFEROL [Concomitant]
     Active Substance: CHOLECALCIFEROL
  7. CYCLIZINE [Concomitant]
     Active Substance: CYCLIZINE
  8. CODEINE [Concomitant]
     Active Substance: CODEINE
  9. PARACETAMOL [Concomitant]
     Active Substance: ACETAMINOPHEN
  10. PERINDOPRIL ERBUMINE. [Suspect]
     Active Substance: PERINDOPRIL ERBUMINE
     Indication: PRODUCT USED FOR UNKNOWN INDICATION
     Route: 048
     Dates: end: 20140722
  11. SPIRONOLACTONE (SPIRONOLACTONE) [Suspect]
     Active Substance: SPIRONOLACTONE
     Indication: PRODUCT USED FOR UNKNOWN INDICATION
     Route: 048
     Dates: start: 20140703, end: 20140722
  12. TRIMETHOPRIM (TRIMETHOPRIM) [Suspect]
     Active Substance: TRIMETHOPRIM
     Indication: URINARY TRACT INFECTION
     Route: 048
     Dates: start: 20140717, end: 20140722
  13. BISOPROLOL [Concomitant]
     Active Substance: BISOPROLOL
  14. CLOPIDOGREL [Concomitant]
     Active Substance: CLOPIDOGREL BISULFATE

REACTIONS (3)
  - Renal failure acute [None]
  - Hyperkalaemia [None]
  - Hyponatraemia [None]

NARRATIVE: CASE EVENT DATE: 20140722
